FAERS Safety Report 17050783 (Version 5)
Quarter: 2021Q4

REPORT INFORMATION
  Report Type: Report from Study
  Country: GR (occurrence: GR)
  Receive Date: 20191119
  Receipt Date: 20211004
  Transmission Date: 20220303
  Serious: Yes (Hospitalization)
  Sender: FDA-Public Use
  Company Number: GR-BIOGEN-2019BI00806841

PATIENT
  Age: 3 Year
  Sex: Male
  Weight: 11 kg

DRUGS (11)
  1. SPINRAZA [Suspect]
     Active Substance: NUSINERSEN
     Indication: Spinal muscular atrophy
     Route: 037
     Dates: start: 20161220
  2. COLISTIN [Concomitant]
     Active Substance: COLISTIN
     Indication: Respiratory disorder
     Dosage: 2MIU/ NEBULIZATION
     Route: 065
     Dates: start: 20170228
  3. COLISTIN [Concomitant]
     Active Substance: COLISTIN
     Dosage: 1MIU/ NEBULIZATION
     Route: 065
     Dates: start: 201703
  4. IPRATROPIUM BROMIDE [Concomitant]
     Active Substance: IPRATROPIUM BROMIDE
     Indication: Bronchial disorder
     Dosage: NEBULIZATION
     Route: 065
     Dates: start: 20180228
  5. IPRATROPIUM BROMIDE [Concomitant]
     Active Substance: IPRATROPIUM BROMIDE
     Dosage: NEBULIZATION
     Route: 065
     Dates: start: 201703
  6. DOMPERIDONE [Concomitant]
     Active Substance: DOMPERIDONE
     Indication: Product used for unknown indication
     Dosage: 6/ ORAL/ DAILY (GASTROKINETIC)
     Route: 048
     Dates: start: 20180228
  7. DOMPERIDONE [Concomitant]
     Active Substance: DOMPERIDONE
     Dosage: 3 MG/ ORAL/ DAILY (GASTROKINETIC)
     Route: 048
     Dates: start: 201803
  8. NEXIUM [Concomitant]
     Active Substance: ESOMEPRAZOLE MAGNESIUM
     Indication: Gastrooesophageal reflux disease
     Route: 048
     Dates: start: 20180228
  9. NEXIUM [Concomitant]
     Active Substance: ESOMEPRAZOLE MAGNESIUM
     Route: 048
     Dates: start: 201803
  10. MIRALAX [Concomitant]
     Active Substance: POLYETHYLENE GLYCOL 3350
     Indication: Constipation
     Dosage: 0,6/ ORAL/ DAILY
     Route: 048
     Dates: start: 20180228
  11. MIRALAX [Concomitant]
     Active Substance: POLYETHYLENE GLYCOL 3350
     Dosage: 0,6/ ORAL/ DAILY
     Route: 048
     Dates: start: 201803

REACTIONS (2)
  - Pseudomonas infection [Recovered/Resolved]
  - Staphylococcal infection [Recovered/Resolved]

NARRATIVE: CASE EVENT DATE: 20190920
